FAERS Safety Report 7518698-8 (Version None)
Quarter: 2011Q2

REPORT INFORMATION
  Report Type: 
  Country: None (occurrence: None)
  Receive Date: 20110602
  Receipt Date: 20110519
  Transmission Date: 20111010
  Serious: Yes (Other)
  Sender: FDA-Public Use
  Company Number: PHHY2010CA82037

PATIENT

DRUGS (7)
  1. ALISKIREN [Suspect]
     Dosage: EVERY DAY
  2. LASIX [Concomitant]
     Dosage: UNK
  3. LIPITOR [Concomitant]
     Dosage: UNK
  4. PLAVIX [Concomitant]
     Dosage: UNK
  5. INSULIN [Concomitant]
     Dosage: UNK
  6. METFORMIN HCL [Concomitant]
     Dosage: UNK
  7. FLOMAX [Concomitant]
     Dosage: UNK

REACTIONS (3)
  - PANCREATIC CARCINOMA [None]
  - ABDOMINAL PAIN [None]
  - GASTRIC CANCER [None]
